FAERS Safety Report 15929672 (Version 3)
Quarter: 2019Q2

REPORT INFORMATION
  Report Type: Spontaneous
  Country: IT (occurrence: IT)
  Receive Date: 20190206
  Receipt Date: 20190527
  Transmission Date: 20190711
  Serious: Yes (Death, Hospitalization, Other)
  Sender: FDA-Public Use
  Company Number: PHHY2019IT027362

PATIENT
  Age: 81 Year
  Sex: Female
  Weight: 56 kg

DRUGS (2)
  1. PAZOPANIB [Suspect]
     Active Substance: PAZOPANIB
     Indication: RENAL CANCER RECURRENT
     Dosage: 800 MG, QD
     Route: 048
     Dates: start: 20181204, end: 20181218
  2. COTAREG [Concomitant]
     Active Substance: HYDROCHLOROTHIAZIDE\VALSARTAN
     Indication: PRODUCT USED FOR UNKNOWN INDICATION
     Route: 065

REACTIONS (17)
  - Electrolyte imbalance [Unknown]
  - Renal cancer [Unknown]
  - Gallbladder disorder [Unknown]
  - Pruritus [Unknown]
  - Cholecystitis [Unknown]
  - Asthenia [Unknown]
  - Jaundice [Fatal]
  - Small intestine carcinoma metastatic [Unknown]
  - Decreased appetite [Unknown]
  - Prealbumin increased [Unknown]
  - Hypotonia [Unknown]
  - Hyperaemia [Unknown]
  - Adnexa uteri mass [Unknown]
  - Blood bilirubin increased [Unknown]
  - Transaminases increased [Unknown]
  - Blood alkaline phosphatase increased [Unknown]
  - Gamma-glutamyltransferase increased [Unknown]

NARRATIVE: CASE EVENT DATE: 20190101
